FAERS Safety Report 6620187-X (Version None)
Quarter: 2010Q1

REPORT INFORMATION
  Report Type: 
  Country: None (occurrence: None)
  Receive Date: 20100309
  Receipt Date: 20100121
  Transmission Date: 20100710
  Serious: Yes (Hospitalization)
  Sender: FDA-Public Use
  Company Number: US-BIOGENIDEC-199231

PATIENT
  Age: 54 Year
  Sex: Female

DRUGS (5)
  1. AVONEX [Suspect]
     Indication: MULTIPLE SCLEROSIS
     Route: 030
     Dates: start: 19980501, end: 20030801
  2. AVONEX [Suspect]
     Route: 030
     Dates: start: 20030801, end: 20090101
  3. AVONEX [Suspect]
     Route: 030
     Dates: start: 20090101, end: 20100109
  4. AVONEX [Suspect]
     Route: 030
     Dates: start: 20100109
  5. AVONEX [Suspect]
     Route: 030
     Dates: start: 20100116

REACTIONS (2)
  - CONVULSION [None]
  - MULTIPLE SCLEROSIS RELAPSE [None]
